FAERS Safety Report 11977296 (Version 1)
Quarter: 2016Q1

REPORT INFORMATION
  Report Type: Spontaneous
  Country: US (occurrence: None)
  Receive Date: 20160128
  Receipt Date: 20160128
  Transmission Date: 20160526
  Serious: Yes (Life-Threatening, Hospitalization, Other)
  Sender: FDA-Public Use
  Company Number: None

PATIENT
  Age: 72 Year
  Sex: Female
  Weight: 57.61 kg

DRUGS (7)
  1. ATORVASTATIN [Concomitant]
     Active Substance: ATORVASTATIN
  2. D3 2000 IU VITAMIN D [Concomitant]
  3. XARELTO [Concomitant]
     Active Substance: RIVAROXABAN
  4. MAGNESIUM [Concomitant]
     Active Substance: MAGNESIUM
  5. SYNTHROID [Concomitant]
     Active Substance: LEVOTHYROXINE SODIUM
  6. XARELTO [Suspect]
     Active Substance: RIVAROXABAN
     Indication: DEEP VEIN THROMBOSIS
     Dosage: 1 TABLET?12 DAYS
     Route: 048
  7. CALTRATE 600D3 [Concomitant]

REACTIONS (3)
  - Dizziness [None]
  - Blood pressure increased [None]
  - Asthenia [None]

NARRATIVE: CASE EVENT DATE: 20150126
